FAERS Safety Report 16712851 (Version 2)
Quarter: 2019Q3

REPORT INFORMATION
  Report Type: Spontaneous
  Country: NL (occurrence: NL)
  Receive Date: 20190817
  Receipt Date: 20190906
  Transmission Date: 20191004
  Serious: Yes (Other)
  Sender: FDA-Public Use
  Company Number: NL-AUROBINDO-AUR-APL-2019-053666

PATIENT

DRUGS (4)
  1. GALANTAMINE 16 MG PROLONGED RELEASE CAPSULES [Suspect]
     Active Substance: GALANTAMINE
     Dosage: 16 MILLIGRAM, ONCE A DAY
     Route: 048
     Dates: start: 201807
  2. GALANTAMINE 16 MG PROLONGED RELEASE CAPSULES [Suspect]
     Active Substance: GALANTAMINE
     Dosage: 24 MILLIGRAM, ONCE A DAY
     Route: 048
  3. GALANTAMINE 16 MG PROLONGED RELEASE CAPSULES [Suspect]
     Active Substance: GALANTAMINE
     Indication: DEMENTIA ALZHEIMER^S TYPE
     Dosage: 16 MILLIGRAM, ONCE A DAY
     Route: 048
  4. GALANTAMINE 16 MG PROLONGED RELEASE CAPSULES [Suspect]
     Active Substance: GALANTAMINE
     Dosage: 8 MILLIGRAM, ONCE A DAY
     Route: 048
     Dates: start: 201804

REACTIONS (5)
  - Vomiting [Unknown]
  - Loss of consciousness [Recovered/Resolved]
  - Decreased appetite [Unknown]
  - Nausea [Unknown]
  - Vision blurred [Unknown]

NARRATIVE: CASE EVENT DATE: 20180720
